FAERS Safety Report 5109835-3 (Version None)
Quarter: 2006Q3

REPORT INFORMATION
  Report Type: 
  Country: None (occurrence: None)
  Receive Date: 20060918
  Receipt Date: 20060918
  Transmission Date: 20061208
  Serious: Yes (Hospitalization)
  Sender: FDA-Public Use
  Company Number: None

PATIENT
  Sex: Male
  Weight: 76 kg

DRUGS (9)
  1. FLUDARABINE / CAMPAT [Suspect]
     Indication: STEM CELL TRANSPLANT
  2. CAMPATH [Suspect]
     Indication: STEM CELL TRANSPLANT
     Dosage: 48/20 ONCE A DAY IV DRIP
     Route: 041
     Dates: start: 20060725, end: 20060729
  3. BUSULFAN [Suspect]
     Indication: STEM CELL TRANSPLANT
     Dosage: 246 - 2 DOES - 310 - 2 ONCE A DAY IV DRIP
     Route: 041
     Dates: start: 20060726, end: 20060729
  4. PROGRAF [Concomitant]
  5. LOVENOX [Concomitant]
  6. ORAL AND IV VANCOMYCIN [Concomitant]
  7. VORICONAZOLE [Concomitant]
  8. DAPTOMYCIN [Concomitant]
  9. CIFOFAVIR [Concomitant]

REACTIONS (4)
  - BACTERIAL INFECTION [None]
  - BK VIRUS INFECTION [None]
  - BLOOD CREATININE INCREASED [None]
  - CLOSTRIDIAL INFECTION [None]
